FAERS Safety Report 17755850 (Version 1)
Quarter: 2020Q2

REPORT INFORMATION
  Report Type: Spontaneous
  Country: GB (occurrence: GB)
  Receive Date: 20200507
  Receipt Date: 20200507
  Transmission Date: 20200714
  Serious: Yes (Hospitalization)
  Sender: FDA-Public Use
  Company Number: GB-ACCORD-180847

PATIENT
  Age: 48 Year

DRUGS (9)
  1. DIAZEPAM. [Concomitant]
     Active Substance: DIAZEPAM
  2. LACTULOSE. [Concomitant]
     Active Substance: LACTULOSE
     Dosage: EVERY NIGHT
  3. MIRTAZAPINE. [Concomitant]
     Active Substance: MIRTAZAPINE
     Dosage: EVERY NIGHT
  4. SERTRALINE [Concomitant]
     Active Substance: SERTRALINE HYDROCHLORIDE
     Dosage: EVERY MORNING
  5. HYOSCINE [Concomitant]
     Active Substance: SCOPOLAMINE
  6. PROCYCLIDINE [Concomitant]
     Active Substance: PROCYCLIDINE
  7. ZUCLOPENTHIXOL/ZUCLOPENTHIXOL ACETATE/ZUCLOPENTHIXOL DECANOATE/ZUCLOPENTHIXOL HYDROCHLORIDE [Concomitant]
     Active Substance: ZUCLOPENTHIXOL
     Route: 030
  8. ARIPIPRAZOLE. [Suspect]
     Active Substance: ARIPIPRAZOLE
     Indication: PRODUCT USED FOR UNKNOWN INDICATION
  9. MACROGOL 3350 [Concomitant]
     Active Substance: POLYETHYLENE GLYCOL 3350
     Dosage: SACHETS

REACTIONS (7)
  - Hyperhidrosis [Recovering/Resolving]
  - Neuroleptic malignant syndrome [Recovering/Resolving]
  - Flushing [Recovering/Resolving]
  - Muscle rigidity [Recovering/Resolving]
  - Dyskinesia [Recovering/Resolving]
  - Bradykinesia [Recovering/Resolving]
  - Akinesia [Recovering/Resolving]
